FAERS Safety Report 21974190 (Version 3)
Quarter: 2023Q2

REPORT INFORMATION
  Report Type: Spontaneous
  Country: CA (occurrence: CA)
  Receive Date: 20230209
  Receipt Date: 20230406
  Transmission Date: 20230722
  Serious: Yes (Hospitalization, Other)
  Sender: FDA-Public Use
  Company Number: CA-PFIZER INC-202201000105

PATIENT
  Age: 61 Year
  Sex: Female
  Weight: 41 kg

DRUGS (3)
  1. ABRILADA [Suspect]
     Active Substance: ADALIMUMAB-AFZB
     Indication: Crohn^s disease
     Dosage: 1 DF, 160 MG (WK 0), 80 MG (WK2), THEN 40 MG EVERY OTHER WEEK
     Route: 058
     Dates: start: 20220720
  2. ABRILADA [Suspect]
     Active Substance: ADALIMUMAB-AFZB
     Dosage: 1 DF, 160 MG (WK 0), 80 MG (WK2), THEN 40 MG EVERY OTHER WEEK
     Route: 058
  3. PREDNISONE [Concomitant]
     Active Substance: PREDNISONE
     Dosage: 25 MG, FREQUENCY: UNKNOWN
     Route: 065
     Dates: start: 20220516

REACTIONS (21)
  - Pneumonia [Unknown]
  - Condition aggravated [Not Recovered/Not Resolved]
  - Migraine [Unknown]
  - Injection site pain [Unknown]
  - Fatigue [Not Recovered/Not Resolved]
  - Dizziness [Unknown]
  - Headache [Not Recovered/Not Resolved]
  - Asthenia [Recovering/Resolving]
  - Weight increased [Unknown]
  - Appetite disorder [Recovering/Resolving]
  - Abdominal pain [Unknown]
  - Diarrhoea [Unknown]
  - Injection site erythema [Recovered/Resolved]
  - Constipation [Unknown]
  - Mouth ulceration [Recovered/Resolved]
  - Anal fissure [Recovered/Resolved]
  - Night sweats [Not Recovered/Not Resolved]
  - Hot flush [Unknown]
  - Alopecia [Not Recovered/Not Resolved]
  - Nausea [Not Recovered/Not Resolved]
  - Dyspnoea [Not Recovered/Not Resolved]

NARRATIVE: CASE EVENT DATE: 20220101
